FAERS Safety Report 5765726-6 (Version None)
Quarter: 2008Q2

REPORT INFORMATION
  Report Type: 
  Country: None (occurrence: None)
  Receive Date: 20080611
  Receipt Date: 20080602
  Transmission Date: 20081010
  Serious: Yes (Other)
  Sender: FDA-Public Use
  Company Number: PHHY2008JP07940

PATIENT
  Age: 77 Year
  Sex: Female

DRUGS (6)
  1. LAMISIL [Suspect]
     Dosage: 125 MG/DAY
     Route: 048
     Dates: start: 20080319, end: 20080430
  2. LIPITOR [Interacting]
     Dosage: 10 MG
     Route: 048
  3. DOGMATYL [Concomitant]
     Dosage: 100 MG
     Route: 048
  4. LENDORMIN [Concomitant]
     Route: 048
  5. PEKIRON [Concomitant]
     Indication: TINEA PEDIS
     Dosage: UNK
     Dates: start: 20060801, end: 20070301
  6. LAMISIL                            /00992601/ [Concomitant]
     Indication: TINEA PEDIS
     Dosage: UNK
     Dates: start: 20060801, end: 20070301

REACTIONS (6)
  - ALANINE AMINOTRANSFERASE INCREASED [None]
  - ASPARTATE AMINOTRANSFERASE INCREASED [None]
  - BLOOD LACTATE DEHYDROGENASE INCREASED [None]
  - DRUG INTERACTION [None]
  - GAMMA-GLUTAMYLTRANSFERASE INCREASED [None]
  - LIVER DISORDER [None]
